FAERS Safety Report 9563679 (Version 1)
Quarter: 2013Q3

REPORT INFORMATION
  Report Type: Spontaneous
  Country: US (occurrence: None)
  Receive Date: 20130916
  Receipt Date: 20130916
  Transmission Date: 20140515
  Serious: Yes (Hospitalization)
  Sender: FDA-Public Use
  Company Number: JPI-P-001969

PATIENT
  Age: 33 Year
  Sex: Female
  Weight: 70.31 kg

DRUGS (5)
  1. XYREM (500 MILLIGRAM/MILLILITERS, SOLUTION) (SODIUM OXYBATE) [Suspect]
     Indication: CATAPLEXY
     Dosage: 4 GM FIRST DOSE/ 2 GM SECOND DOSE, ORAL
     Route: 048
     Dates: start: 20070518
  2. SERTRALINE [Concomitant]
  3. LEVOTHYROXINE [Concomitant]
  4. THYROXINE [Concomitant]
  5. ARMODAFINIL [Concomitant]

REACTIONS (3)
  - Paranoia [None]
  - Tremor [None]
  - Acute psychosis [None]
